FAERS Safety Report 4340343-3 (Version None)
Quarter: 2004Q2

REPORT INFORMATION
  Report Type: 
  Country: None (occurrence: None)
  Receive Date: 20040405
  Receipt Date: 20040325
  Transmission Date: 20050107
  Serious: Yes (Life-Threatening, Hospitalization)
  Sender: FDA-Public Use
  Company Number: 2003-03281

PATIENT
  Age: 70 Year
  Sex: Male

DRUGS (1)
  1. IMMUCYST (BCG - IT (CONNAUGHT)) [Suspect]
     Indication: BLADDER CANCER
     Dosage: 81.0 MG IN, BLADDER
     Dates: start: 20031106

REACTIONS (20)
  - BLOOD IRON DECREASED [None]
  - BOVINE TUBERCULOSIS [None]
  - CHOLESTASIS [None]
  - CREPITATIONS [None]
  - DRUG HYPERSENSITIVITY [None]
  - FIBRIN D DIMER INCREASED [None]
  - GENERAL PHYSICAL HEALTH DETERIORATION [None]
  - HEADACHE [None]
  - HEPATITIS [None]
  - HEPATOMEGALY [None]
  - HYPERTRIGLYCERIDAEMIA [None]
  - LUNG DISORDER [None]
  - LYMPHOPENIA [None]
  - OXYGEN SATURATION DECREASED [None]
  - PNEUMONIA [None]
  - PYREXIA [None]
  - SERUM FERRITIN INCREASED [None]
  - THROMBOCYTOPENIA [None]
  - WEIGHT DECREASED [None]
  - WHITE BLOOD CELLS URINE POSITIVE [None]
